FAERS Safety Report 9106786 (Version 1)
Quarter: 2013Q1

REPORT INFORMATION
  Report Type: Spontaneous
  Country: SE (occurrence: SE)
  Receive Date: 20130220
  Receipt Date: 20130220
  Transmission Date: 20140127
  Serious: Yes (Other)
  Sender: FDA-Public Use
  Company Number: SE-EISAI INC-E2080-00600-SPO-SE

PATIENT
  Age: 11 Year
  Sex: Female

DRUGS (7)
  1. INOVELON [Suspect]
     Indication: EPILEPSY
     Dosage: UNKNOWN
     Route: 048
  2. PROPOFOL [Suspect]
     Indication: TOOTH EXTRACTION
     Dosage: UNKNOWN
     Dates: start: 20121003, end: 20121003
  3. SEVOFLURANE [Suspect]
     Indication: TOOTH EXTRACTION
     Dosage: UNKNOWN
     Route: 055
     Dates: start: 20121003, end: 20121003
  4. REMIFENTANIL [Suspect]
     Indication: TOOTH EXTRACTION
     Dosage: UNKNOWN
     Dates: start: 20121003, end: 20121003
  5. LAMICTAL [Concomitant]
  6. FRISIUM [Concomitant]
     Route: 048
  7. LEHYDAN [Concomitant]
     Route: 048

REACTIONS (2)
  - Drug level increased [Recovering/Resolving]
  - Convulsion [Unknown]
